FAERS Safety Report 12232269 (Version 1)
Quarter: 2016Q2

REPORT INFORMATION
  Report Type: Spontaneous
  Country: FR (occurrence: FR)
  Receive Date: 20160401
  Receipt Date: 20160401
  Transmission Date: 20160815
  Serious: Yes (Other)
  Sender: FDA-Public Use
  Company Number: FR-BAYER-2016-057732

PATIENT
  Sex: Male
  Weight: .94 kg

DRUGS (4)
  1. ACETYLSALICYLIC ACID (} 100 MG) [Suspect]
     Active Substance: ASPIRIN
     Indication: PROPHYLAXIS
     Route: 064
  2. IOMERON [Concomitant]
     Active Substance: IOMEPROL
     Indication: ANGIOPLASTY
     Route: 064
  3. NICARDIPINE [Concomitant]
     Active Substance: NICARDIPINE
     Indication: PRE-ECLAMPSIA
     Route: 064
  4. MAGNESIUM SULFATE. [Concomitant]
     Active Substance: MAGNESIUM SULFATE
     Indication: PRE-ECLAMPSIA
     Route: 064

REACTIONS (3)
  - Low birth weight baby [None]
  - Foetal exposure during pregnancy [Recovered/Resolved]
  - Premature baby [None]
